APPROVED DRUG PRODUCT: ETOPOSIDE
Active Ingredient: ETOPOSIDE
Strength: 20MG/ML
Dosage Form/Route: INJECTABLE;INJECTION
Application: A203507 | Product #001
Applicant: DASH PHARMACEUTICALS LLC A FULLY OWNED SUB OF NATCO PHARMA LTD
Approved: Nov 20, 2017 | RLD: No | RS: No | Type: DISCN